FAERS Safety Report 19804557 (Version 1)
Quarter: 2021Q3

REPORT INFORMATION
  Report Type: Spontaneous
  Country: CN (occurrence: CN)
  Receive Date: 20210908
  Receipt Date: 20210908
  Transmission Date: 20211014
  Serious: Yes (Other)
  Sender: FDA-Public Use
  Company Number: CN-PFIZER INC-202101111023

PATIENT
  Age: 65 Year
  Sex: Male

DRUGS (7)
  1. CEFOXITIN [Concomitant]
     Active Substance: CEFOXITIN SODIUM
     Indication: ANTI-INFECTIVE THERAPY
     Dosage: UNK
     Dates: start: 2021
  2. ALUMINUM PHOSPHATE [Concomitant]
     Active Substance: ALUMINUM PHOSPHATE
     Indication: GASTRIC DISORDER
     Dosage: UNK
  3. OMEPRAZOLE. [Interacting]
     Active Substance: OMEPRAZOLE
     Indication: HYPERCHLORHYDRIA
     Dosage: UNK
     Dates: start: 2021, end: 2021
  4. VORICONAZOLE. [Suspect]
     Active Substance: VORICONAZOLE
     Indication: INFECTION
     Dosage: 400 MG, 2X/DAY
     Route: 041
     Dates: start: 20210301
  5. OMEPRAZOLE. [Interacting]
     Active Substance: OMEPRAZOLE
     Indication: BLOOD PRESSURE INCREASED
  6. OMEPRAZOLE. [Interacting]
     Active Substance: OMEPRAZOLE
     Indication: ABDOMINAL DISCOMFORT
  7. OMEPRAZOLE. [Interacting]
     Active Substance: OMEPRAZOLE
     Indication: SYMPTOMATIC TREATMENT

REACTIONS (4)
  - Oedema peripheral [Recovering/Resolving]
  - Alanine aminotransferase increased [Recovering/Resolving]
  - Inhibitory drug interaction [Unknown]
  - Vision blurred [Recovering/Resolving]

NARRATIVE: CASE EVENT DATE: 2021
